FAERS Safety Report 9164836 (Version 1)
Quarter: 2013Q1

REPORT INFORMATION
  Report Type: Spontaneous
  Country: US (occurrence: None)
  Receive Date: 20130226
  Receipt Date: 20130226
  Transmission Date: 20140127
  Serious: Yes (Other)
  Sender: FDA-Public Use
  Company Number: 2013P1002335

PATIENT
  Age: 14 Year
  Sex: Male

DRUGS (3)
  1. MYORISAN [Suspect]
     Indication: ACNE
     Dosage: 1 CAPSULE; QD; PO
     Route: 048
     Dates: start: 20121126, end: 201301
  2. MYORISAN 20 MG (NO PREF. NAME) [Suspect]
     Indication: ACNE
     Dosage: 1 CAPSULE; QD; PO
     Route: 048
     Dates: start: 20130102, end: 201301
  3. CLARAVIS [Concomitant]

REACTIONS (3)
  - Mood altered [None]
  - Depression [None]
  - Suicidal ideation [None]
